FAERS Safety Report 14367497 (Version 3)
Quarter: 2018Q1

REPORT INFORMATION
  Report Type: Report from Study
  Country: None (occurrence: US)
  Receive Date: 20180109
  Receipt Date: 20180313
  Transmission Date: 20180509
  Serious: Yes (Hospitalization)
  Sender: FDA-Public Use
  Company Number: US-ABBVIE-18K-163-2214725-00

PATIENT
  Age: 66 Year
  Sex: Male
  Weight: 149.37 kg

DRUGS (8)
  1. HYDROXYCHLOROQUINE [Concomitant]
     Active Substance: HYDROXYCHLOROQUINE
     Indication: RHEUMATOID ARTHRITIS
  2. ATORVASTATIN [Concomitant]
     Active Substance: ATORVASTATIN
     Indication: PRODUCT USED FOR UNKNOWN INDICATION
  3. METOPROLOL. [Concomitant]
     Active Substance: METOPROLOL
     Indication: BLOOD PRESSURE MEASUREMENT
  4. LEFLUNOMIDE. [Concomitant]
     Active Substance: LEFLUNOMIDE
     Indication: RHEUMATOID ARTHRITIS
  5. PREDNISONE. [Concomitant]
     Active Substance: PREDNISONE
     Indication: LUNG DISORDER
  6. PANTOPRAZOLE [Concomitant]
     Active Substance: PANTOPRAZOLE
     Indication: PRODUCT USED FOR UNKNOWN INDICATION
  7. GABAPENTIN. [Concomitant]
     Active Substance: GABAPENTIN
     Indication: RHEUMATOID ARTHRITIS
  8. HUMIRA [Suspect]
     Active Substance: ADALIMUMAB
     Indication: RHEUMATOID ARTHRITIS
     Route: 058
     Dates: start: 20170912

REACTIONS (6)
  - Oxygen saturation decreased [Recovering/Resolving]
  - Pyrexia [Unknown]
  - Dyspnoea [Recovering/Resolving]
  - Gait disturbance [Not Recovered/Not Resolved]
  - Emphysema [Not Recovered/Not Resolved]
  - Adhesion [Unknown]

NARRATIVE: CASE EVENT DATE: 2017
